FAERS Safety Report 23462614 (Version 3)
Quarter: 2024Q3

REPORT INFORMATION
  Report Type: Spontaneous
  Country: US (occurrence: US)
  Receive Date: 20240131
  Receipt Date: 20240927
  Transmission Date: 20241017
  Serious: Yes (Death, Hospitalization, Other)
  Sender: INCYTE
  Company Number: US-INCYTE CORPORATION-2024IN000809

PATIENT

DRUGS (5)
  1. JAKAFI [Suspect]
     Active Substance: RUXOLITINIB
     Indication: Graft versus host disease
     Dosage: 1/2 10MG TABLET, BID
     Route: 048
     Dates: start: 20240122, end: 20240429
  2. JAKAFI [Suspect]
     Active Substance: RUXOLITINIB
     Dosage: 5 MILLIGRAM, BID
     Route: 048
     Dates: start: 20240613
  3. CELLCEPT [Concomitant]
     Active Substance: MYCOPHENOLATE MOFETIL
     Indication: Product used for unknown indication
     Dosage: UNK
     Route: 065
  4. TACROLIMUS [Concomitant]
     Active Substance: TACROLIMUS
     Indication: Product used for unknown indication
     Dosage: UNK
     Route: 065
  5. PREDNISONE [Concomitant]
     Active Substance: PREDNISONE
     Indication: Product used for unknown indication
     Dosage: UNK
     Route: 065

REACTIONS (6)
  - Multiple organ dysfunction syndrome [Fatal]
  - Chronic graft versus host disease in liver [Fatal]
  - Condition aggravated [Fatal]
  - Hyperbilirubinaemia [Recovering/Resolving]
  - Post procedural complication [Unknown]
  - Wrong technique in product usage process [Unknown]

NARRATIVE: CASE EVENT DATE: 20240101
